FAERS Safety Report 4950485-7 (Version None)
Quarter: 2006Q1

REPORT INFORMATION
  Report Type: 
  Country: None (occurrence: None)
  Receive Date: 20060322
  Receipt Date: 20060120
  Transmission Date: 20060701
  Serious: Yes (Other)
  Sender: FDA-Public Use
  Company Number: JP-JPN-A200600280

PATIENT
  Age: 68 Year
  Sex: Male

DRUGS (5)
  1. SULTANOL [Suspect]
     Indication: ASTHMA
     Route: 055
     Dates: end: 20060114
  2. SPIROPENT [Concomitant]
     Indication: ASTHMA
     Dosage: 20MCG PER DAY
     Route: 048
  3. ZADITEN [Concomitant]
     Indication: ASTHMA
     Dosage: 2MG PER DAY
     Route: 048
  4. ONON [Concomitant]
     Indication: ASTHMA
     Dosage: 225MG PER DAY
     Route: 048
  5. THEO-DUR [Concomitant]
     Indication: ASTHMA
     Dosage: 400MG PER DAY
     Route: 048

REACTIONS (3)
  - EPISTAXIS [None]
  - PHARMACEUTICAL PRODUCT COMPLAINT [None]
  - PHARYNGEAL HAEMORRHAGE [None]
